FAERS Safety Report 5759791-X (Version None)
Quarter: 2008Q2

REPORT INFORMATION
  Report Type: 
  Country: None (occurrence: None)
  Receive Date: 20080605
  Receipt Date: 20080529
  Transmission Date: 20081010
  Serious: Yes (Hospitalization)
  Sender: FDA-Public Use
  Company Number: B0523286A

PATIENT
  Age: 60 Year
  Sex: Female
  Weight: 70 kg

DRUGS (3)
  1. ZOVIRAX [Suspect]
     Dosage: 3G PER DAY
     Route: 042
     Dates: start: 20080428, end: 20080505
  2. CLAMOXYL [Concomitant]
     Dates: end: 20080502
  3. CLAFORAN [Concomitant]

REACTIONS (4)
  - BLOOD CREATININE INCREASED [None]
  - CREATININE RENAL CLEARANCE DECREASED [None]
  - DRUG LEVEL INCREASED [None]
  - RENAL FAILURE ACUTE [None]
